FAERS Safety Report 4936558-3 (Version None)
Quarter: 2006Q1

REPORT INFORMATION
  Report Type: 
  Country: None (occurrence: None)
  Receive Date: 20060307
  Receipt Date: 20051109
  Transmission Date: 20060701
  Serious: Yes (Hospitalization)
  Sender: FDA-Public Use
  Company Number: US-MERCK-0511USA01571

PATIENT
  Age: 66 Year
  Sex: Male
  Weight: 99 kg

DRUGS (14)
  1. VIOXX [Suspect]
     Indication: ARTHRITIS
     Route: 048
     Dates: start: 20000812, end: 20040912
  2. IBUPROFEN [Concomitant]
     Route: 065
  3. DIOVAN [Concomitant]
     Route: 065
  4. AMARYL [Concomitant]
     Route: 065
  5. TETRACYCLINE [Concomitant]
     Route: 065
  6. ACTOS [Concomitant]
     Route: 065
  7. CYCLOBENZAPRINE HYDROCHLORIDE [Concomitant]
     Route: 065
  8. ERYTHROMYCIN [Concomitant]
     Route: 065
  9. CRESTOR [Concomitant]
     Route: 065
  10. LOTREL [Concomitant]
     Route: 065
  11. AMOXICILLIN [Concomitant]
     Route: 065
  12. ACETAMINOPHEN AND HYDROCODONE BITARTRATE [Concomitant]
     Route: 065
  13. METFORMIN HYDROCHLORIDE [Concomitant]
     Route: 065
  14. BENICAR [Concomitant]
     Route: 065

REACTIONS (3)
  - BLOOD PRESSURE INCREASED [None]
  - CEREBROVASCULAR ACCIDENT [None]
  - INJURY [None]
